FAERS Safety Report 20202452 (Version 2)
Quarter: 2022Q2

REPORT INFORMATION
  Report Type: Spontaneous
  Country: US (occurrence: US)
  Receive Date: 20211217
  Receipt Date: 20220608
  Transmission Date: 20220721
  Serious: No
  Sender: FDA-Public Use
  Company Number: US-REGENERON PHARMACEUTICALS, INC.-2021-97192

PATIENT
  Sex: Male

DRUGS (3)
  1. EYLEA [Suspect]
     Active Substance: AFLIBERCEPT
     Indication: Neovascular age-related macular degeneration
     Dosage: ONCE A MONTH, THEN EVERY 5 OR 6 WEEKS
     Route: 031
     Dates: start: 202101, end: 202101
  2. EYLEA [Suspect]
     Active Substance: AFLIBERCEPT
     Dosage: ONCE A MONTH, THEN EVERY 5 OR 6 WEEKS IN BOTH EYES
     Route: 031
     Dates: start: 20210925, end: 20210925
  3. EYLEA [Suspect]
     Active Substance: AFLIBERCEPT
     Dosage: ONCE A MONTH, THEN EVERY 5 OR 6 WEEKS IN RIGHT EYE
     Route: 031
     Dates: start: 202112

REACTIONS (8)
  - Sinusitis [Not Recovered/Not Resolved]
  - Sinus congestion [Not Recovered/Not Resolved]
  - Fatigue [Not Recovered/Not Resolved]
  - Dry eye [Not Recovered/Not Resolved]
  - Eye irritation [Not Recovered/Not Resolved]
  - Dry skin [Not Recovered/Not Resolved]
  - Dry mouth [Not Recovered/Not Resolved]
  - Myalgia [Not Recovered/Not Resolved]

NARRATIVE: CASE EVENT DATE: 20210101
